FAERS Safety Report 18284867 (Version 1)
Quarter: 2020Q3

REPORT INFORMATION
  Report Type: Spontaneous
  Country: CH (occurrence: CH)
  Receive Date: 20200918
  Receipt Date: 20200918
  Transmission Date: 20201103
  Serious: Yes (Other)
  Sender: FDA-Public Use
  Company Number: CH-GLAXOSMITHKLINE-CH2020186741

PATIENT
  Sex: Female

DRUGS (1)
  1. MALARONE [Suspect]
     Active Substance: ATOVAQUONE\PROGUANIL HYDROCHLORIDE
     Indication: PROPHYLAXIS
     Dosage: 1 DF (TRAVEL PROPHYLAXIS)
     Route: 048
     Dates: start: 201401, end: 201401

REACTIONS (1)
  - Anorexia nervosa [Recovering/Resolving]

NARRATIVE: CASE EVENT DATE: 2014
